FAERS Safety Report 22687878 (Version 3)
Quarter: 2023Q4

REPORT INFORMATION
  Report Type: Spontaneous
  Country: US (occurrence: US)
  Receive Date: 20230710
  Receipt Date: 20231003
  Transmission Date: 20240110
  Serious: Yes (Other)
  Sender: FDA-Public Use
  Company Number: US-PPDUS-2023ST001660

PATIENT
  Age: 73 Year
  Sex: Female

DRUGS (1)
  1. ORSERDU [Suspect]
     Active Substance: ELACESTRANT
     Indication: Product used for unknown indication
     Route: 048
     Dates: start: 20230616

REACTIONS (5)
  - Surgery [Recovering/Resolving]
  - Upper limb fracture [Recovering/Resolving]
  - Fall [Recovered/Resolved with Sequelae]
  - Adverse drug reaction [Unknown]
  - Nausea [Recovered/Resolved]

NARRATIVE: CASE EVENT DATE: 20230601
